FAERS Safety Report 6437774-4 (Version None)
Quarter: 2009Q4

REPORT INFORMATION
  Report Type: 
  Country: None (occurrence: None)
  Receive Date: 20091112
  Receipt Date: 20091111
  Transmission Date: 20100525
  Serious: Yes (Other)
  Sender: FDA-Public Use
  Company Number: US-B.I. PHARMACEUTICALS,INC./RIDGEFIELD-2009-BP-12304BP

PATIENT
  Sex: Male

DRUGS (5)
  1. SPIRIVA [Suspect]
     Indication: CHRONIC OBSTRUCTIVE PULMONARY DISEASE
     Dosage: 18 MCG
     Route: 055
     Dates: start: 20080926
  2. SPIRIVA [Suspect]
     Indication: DYSPNOEA
  3. PRINIVIL [Concomitant]
     Indication: HYPERTENSION
  4. CHLORPHENIRAMINE MALEATE [Concomitant]
     Indication: MULTIPLE ALLERGIES
  5. DOXAZOSIN MESYLATE [Concomitant]
     Indication: NOCTURIA

REACTIONS (2)
  - DYSPNOEA EXERTIONAL [None]
  - LUNG NEOPLASM MALIGNANT [None]
